FAERS Safety Report 11757077 (Version 1)
Quarter: 2015Q4

REPORT INFORMATION
  Report Type: Spontaneous
  Country: US (occurrence: None)
  Receive Date: 20151119
  Receipt Date: 20151119
  Transmission Date: 20160304
  Serious: Yes (Life-Threatening)
  Sender: FDA-Public Use
  Company Number: None

PATIENT
  Age: 64 Year
  Sex: Female
  Weight: 84 kg

DRUGS (5)
  1. VASOPRESSIN INFUSION [Concomitant]
  2. KCENTRA [Suspect]
     Active Substance: COAGULATION FACTOR IX HUMAN\COAGULATION FACTOR VII HUMAN\COAGULATION FACTOR X HUMAN\PROTEIN C\PROTEIN S HUMAN\PROTHROMBIN
     Indication: PRODUCT USED FOR UNKNOWN INDICATION
     Dosage: 25 UNITS/KG ONCE
     Route: 042
     Dates: start: 20151113, end: 20151113
  3. ZOSYN [Concomitant]
     Active Substance: PIPERACILLIN SODIUM\TAZOBACTAM SODIUM
  4. VANCOMYCIN [Concomitant]
     Active Substance: VANCOMYCIN
  5. NOREPINEPHRINE INFUSION [Concomitant]

REACTIONS (5)
  - Colitis ischaemic [None]
  - Anaemia [None]
  - Cardiac arrest [None]
  - Septic shock [None]
  - Urinary tract infection [None]

NARRATIVE: CASE EVENT DATE: 20151113
